FAERS Safety Report 5780049-7 (Version None)
Quarter: 2008Q2

REPORT INFORMATION
  Report Type: 
  Country: None (occurrence: None)
  Receive Date: 20080620
  Receipt Date: 20080611
  Transmission Date: 20081010
  Serious: Yes (Life-Threatening)
  Sender: FDA-Public Use
  Company Number: JP-TYCO HEALTHCARE/MALLINCKRODT-T200800896

PATIENT

DRUGS (2)
  1. OPTIRAY 300 [Suspect]
     Indication: SCAN BRAIN
     Dosage: 100 ML, SINGLE
     Route: 042
     Dates: start: 20080527, end: 20080527
  2. INSULIN ASPART [Concomitant]
     Indication: DIABETES MELLITUS
     Route: 058

REACTIONS (3)
  - DEPRESSED LEVEL OF CONSCIOUSNESS [None]
  - DYSPNOEA [None]
  - LARYNGEAL OEDEMA [None]
